FAERS Safety Report 21663002 (Version 2)
Quarter: 2022Q4

REPORT INFORMATION
  Report Type: Spontaneous
  Country: JP (occurrence: JP)
  Receive Date: 20221130
  Receipt Date: 20221207
  Transmission Date: 20230112
  Serious: No
  Sender: FDA-Public Use
  Company Number: JP-GSK-JP2022JPN176197

PATIENT

DRUGS (1)
  1. SOTROVIMAB [Suspect]
     Active Substance: SOTROVIMAB
     Indication: COVID-19
     Dosage: 500 MG, SINGLE
     Route: 041
     Dates: start: 20221014, end: 20221014

REACTIONS (3)
  - Caesarean section [Unknown]
  - Exposure during pregnancy [Unknown]
  - Delivery [Unknown]

NARRATIVE: CASE EVENT DATE: 20221017
